FAERS Safety Report 4950704-7 (Version None)
Quarter: 2006Q1

REPORT INFORMATION
  Report Type: 
  Country: None (occurrence: None)
  Receive Date: 20060321
  Receipt Date: 20060321
  Transmission Date: 20060701
  Serious: Yes (Other)
  Sender: FDA-Public Use
  Company Number: None

PATIENT
  Age: 85 Year
  Sex: Female
  Weight: 69.6 kg

DRUGS (15)
  1. CITALOPRAM HYDROBROMIDE [Suspect]
  2. ESCITALOPRAM OXALATE [Concomitant]
  3. LEVOTHYROXINE SODIUM [Concomitant]
  4. LOPERAMIDE [Concomitant]
  5. PHENYTOIN [Concomitant]
  6. FUROSEMIDE [Concomitant]
  7. RANITIDINE [Concomitant]
  8. CITALOPRAM HYDROBROMIDE [Concomitant]
  9. LISINOPRIL [Concomitant]
  10. TRAZODONE HCL [Concomitant]
  11. DILTIAZEM [Concomitant]
  12. METOPROLOL TARTRATE [Concomitant]
  13. ASPIRIN [Concomitant]
  14. MILK OF MAGNESIA TAB [Concomitant]
  15. ACETAMINOPHEN [Concomitant]

REACTIONS (2)
  - NAUSEA [None]
  - VOMITING [None]
